FAERS Safety Report 11865260 (Version 1)
Quarter: 2015Q4

REPORT INFORMATION
  Report Type: Spontaneous
  Country: FR (occurrence: FR)
  Receive Date: 20151223
  Receipt Date: 20151223
  Transmission Date: 20160305
  Serious: Yes (Hospitalization, Other)
  Sender: FDA-Public Use
  Company Number: FR-BAXTER-2015BAX068728

PATIENT
  Age: 67 Year
  Sex: Male

DRUGS (16)
  1. ACUPAN [Suspect]
     Active Substance: NEFOPAM HYDROCHLORIDE
     Indication: PRODUCT USED FOR UNKNOWN INDICATION
     Route: 065
     Dates: start: 20151022, end: 20151022
  2. XYLOCAINE [Suspect]
     Active Substance: LIDOCAINE HYDROCHLORIDE
     Indication: SURGERY
     Route: 065
     Dates: start: 20151022, end: 20151022
  3. ATRACURIUM HOSPIRA [Suspect]
     Active Substance: ATRACURIUM
     Indication: SURGERY
     Route: 065
     Dates: start: 20151022, end: 20151022
  4. DROLEPTAN [Suspect]
     Active Substance: DROPERIDOL
     Indication: SURGERY
     Route: 065
     Dates: start: 20151022, end: 20151022
  5. KETAMINE PANPHARMA [Suspect]
     Active Substance: KETAMINE
     Indication: SURGERY
     Route: 065
     Dates: start: 20151022, end: 20151022
  6. SUFENTA [Suspect]
     Active Substance: SUFENTANIL CITRATE
     Indication: SURGERY
     Route: 065
     Dates: start: 20151022, end: 20151022
  7. AMOXICILLIN ACIDE CLAVULANIQUE SANDOZ [Suspect]
     Active Substance: AMOXICILLIN\CLAVULANIC ACID
     Indication: ANTIBIOTIC PROPHYLAXIS
     Route: 042
     Dates: start: 20151022, end: 20151022
  8. CONTRAMAL [Suspect]
     Active Substance: TRAMADOL HYDROCHLORIDE
     Indication: PRODUCT USED FOR UNKNOWN INDICATION
     Route: 065
     Dates: start: 20151022, end: 20151023
  9. EPHEDRINE AGUETTANT [Suspect]
     Active Substance: EPHEDRINE
     Indication: SURGERY
     Route: 065
     Dates: start: 20151022, end: 20151022
  10. DEXAMETHASONE. [Suspect]
     Active Substance: DEXAMETHASONE
     Indication: SURGERY
     Route: 065
     Dates: start: 20151022, end: 20151022
  11. AMOXICILLINE SANDOZ [Suspect]
     Active Substance: AMOXICILLIN
     Indication: PRODUCT USED FOR UNKNOWN INDICATION
     Route: 042
     Dates: start: 20151022, end: 20151023
  12. PROPOFOL PANPHARMA [Suspect]
     Active Substance: PROPOFOL
     Indication: SURGERY
     Route: 065
     Dates: start: 20151022, end: 20151022
  13. ATROPINE SULPHATE [Suspect]
     Active Substance: ATROPINE SULFATE
     Indication: SURGERY
     Route: 065
     Dates: start: 20151022, end: 20151022
  14. PROSTIGMINE [Suspect]
     Active Substance: NEOSTIGMINE BROMIDE
     Indication: SURGERY
     Route: 065
     Dates: start: 20151022, end: 20151022
  15. SEVOFLURANE BAXTER 1 ML/ML, LIQUIDE POUR INHALATION PAR VAPEUR [Suspect]
     Active Substance: SEVOFLURANE
     Indication: SURGERY
     Route: 065
     Dates: start: 20151022, end: 20151022
  16. PARACETAMOL [Suspect]
     Active Substance: ACETAMINOPHEN
     Indication: PRODUCT USED FOR UNKNOWN INDICATION
     Route: 065
     Dates: start: 20151022

REACTIONS (3)
  - Postoperative renal failure [Recovered/Resolved]
  - Abscess [Unknown]
  - Fistula [Unknown]

NARRATIVE: CASE EVENT DATE: 20151023
